FAERS Safety Report 24375179 (Version 1)
Quarter: 2024Q3

REPORT INFORMATION
  Report Type: Spontaneous
  Country: CN (occurrence: CN)
  Receive Date: 20240928
  Receipt Date: 20240928
  Transmission Date: 20241016
  Serious: Yes (Hospitalization)
  Sender: ACCORD
  Company Number: None

PATIENT
  Age: 37 Year
  Sex: Female
  Weight: 70 kg

DRUGS (2)
  1. TRASTUZUMAB [Suspect]
     Active Substance: TRASTUZUMAB
     Indication: Invasive ductal breast carcinoma
     Dosage: 414 MILLIGRAM, QD, STRENGTH: 150 MG
     Route: 042
     Dates: start: 20240810, end: 20240811
  2. PACLITAXEL [Suspect]
     Active Substance: PACLITAXEL
     Indication: Invasive ductal breast carcinoma
     Dosage: 270 MILLIGRAM, QD
     Route: 042
     Dates: start: 20240811, end: 20240812

REACTIONS (1)
  - Myelosuppression [Recovered/Resolved]

NARRATIVE: CASE EVENT DATE: 20240821
